FAERS Safety Report 10152268 (Version 1)
Quarter: 2014Q2

REPORT INFORMATION
  Report Type: Spontaneous
  Country: US (occurrence: None)
  Receive Date: 20140502
  Receipt Date: 20140502
  Transmission Date: 20141212
  Serious: Yes (Other)
  Sender: FDA-Public Use
  Company Number: None

PATIENT
  Age: 19 Year
  Sex: Female
  Weight: 61.24 kg

DRUGS (1)
  1. ORTHO EVRA [Suspect]
     Dosage: 1 PATCH ?EVERY WEEK ?APPLIED AS MEDICATED PATCH TO SKIN
     Route: 061
     Dates: start: 20110810, end: 20110819

REACTIONS (3)
  - Vaginal haemorrhage [None]
  - Polyp [None]
  - Cervix disorder [None]
